FAERS Safety Report 10310963 (Version 3)
Quarter: 2014Q3

REPORT INFORMATION
  Report Type: Spontaneous
  Country: US (occurrence: US)
  Receive Date: 20140717
  Receipt Date: 20140924
  Transmission Date: 20150326
  Serious: Yes (Death, Hospitalization, Other)
  Sender: FDA-Public Use
  Company Number: US-009507513-1407USA006812

PATIENT
  Sex: Male
  Weight: 74.38 kg

DRUGS (1)
  1. JANUVIA [Suspect]
     Active Substance: SITAGLIPTIN PHOSPHATE
     Indication: TYPE 2 DIABETES MELLITUS
     Dosage: 100 MG, QD
     Route: 048
     Dates: start: 20080425, end: 20120210

REACTIONS (9)
  - Hypertension [Unknown]
  - Peripheral vascular disorder [Unknown]
  - Prostate cancer [Unknown]
  - Dehydration [Unknown]
  - Hyperlipidaemia [Unknown]
  - Inappropriate schedule of drug administration [Unknown]
  - Cerebrovascular accident [Unknown]
  - Renal failure chronic [Not Recovered/Not Resolved]
  - Pancreatic carcinoma [Fatal]

NARRATIVE: CASE EVENT DATE: 20080425
